FAERS Safety Report 14599877 (Version 2)
Quarter: 2018Q2

REPORT INFORMATION
  Report Type: Report from Study
  Country: US (occurrence: US)
  Receive Date: 20180305
  Receipt Date: 20180409
  Transmission Date: 20180711
  Serious: Yes (Other)
  Sender: FDA-Public Use
  Company Number: US-BIOGEN-2018BI00530002

PATIENT
  Sex: Male

DRUGS (1)
  1. TYSABRI [Suspect]
     Active Substance: NATALIZUMAB
     Indication: MULTIPLE SCLEROSIS
     Route: 042
     Dates: start: 20141217

REACTIONS (3)
  - Post procedural complication [Not Recovered/Not Resolved]
  - Memory impairment [Not Recovered/Not Resolved]
  - Electroconvulsive therapy [Not Recovered/Not Resolved]

NARRATIVE: CASE EVENT DATE: 2017
